FAERS Safety Report 4419629-X (Version None)
Quarter: 2004Q3

REPORT INFORMATION
  Report Type: 
  Country: None (occurrence: None)
  Receive Date: 20040809
  Receipt Date: 20040224
  Transmission Date: 20050211
  Serious: No
  Sender: FDA-Public Use
  Company Number: US-GLAXOSMITHKLINE-A0500586A

PATIENT
  Age: 47 Year
  Sex: Female

DRUGS (3)
  1. PAXIL [Suspect]
     Indication: SCHIZOAFFECTIVE DISORDER
     Dosage: 30MG PER DAY
  2. WELLBUTRIN SR [Suspect]
     Indication: SCHIZOAFFECTIVE DISORDER
     Dosage: 150MG TWICE PER DAY
     Route: 048
     Dates: start: 20030325
  3. UNSPECIFIED MEDICATION [Suspect]

REACTIONS (1)
  - URTICARIA [None]
